FAERS Safety Report 8460718-0 (Version None)
Quarter: 2012Q2

REPORT INFORMATION
  Report Type: 
  Country: None (occurrence: None)
  Receive Date: 20120622
  Receipt Date: 20120614
  Transmission Date: 20120825
  Serious: Yes (Death)
  Sender: FDA-Public Use
  Company Number: PH-BAXTER-2012BAX008833

PATIENT
  Sex: Female

DRUGS (5)
  1. VITAMIN B6 [Concomitant]
  2. FERROUS SULFATE TAB [Concomitant]
  3. INSULIN [Concomitant]
  4. AMLODIPINE [Concomitant]
  5. DIANEAL PD-2 W/ DEXTROSE 1.5% [Suspect]
     Route: 033
     Dates: start: 20111023

REACTIONS (3)
  - DIABETIC NEPHROPATHY [None]
  - RENAL FAILURE CHRONIC [None]
  - HYPERTENSION [None]
